FAERS Safety Report 5427416-9 (Version None)
Quarter: 2007Q3

REPORT INFORMATION
  Report Type: 
  Country: None (occurrence: None)
  Receive Date: 20070824
  Receipt Date: 20070824
  Transmission Date: 20080115
  Serious: Yes (Life-Threatening)
  Sender: FDA-Public Use
  Company Number: None

PATIENT
  Age: 79 Year
  Sex: Female
  Weight: 78 kg

DRUGS (2)
  1. FOSPHENYTOIN [Suspect]
     Indication: ALTERED STATE OF CONSCIOUSNESS
     Dosage: 1000MG 1X ONLY 1V BOLUS
     Route: 040
  2. FOSPHENYTOIN [Suspect]
     Indication: CONVULSION
     Dosage: 1000MG 1X ONLY 1V BOLUS
     Route: 040

REACTIONS (3)
  - BLOOD PRESSURE SYSTOLIC DECREASED [None]
  - CARDIO-RESPIRATORY ARREST [None]
  - ELECTROMECHANICAL DISSOCIATION [None]
